FAERS Safety Report 5284669-8 (Version None)
Quarter: 2007Q1

REPORT INFORMATION
  Report Type: 
  Country: None (occurrence: None)
  Receive Date: 20070328
  Receipt Date: 20070316
  Transmission Date: 20070707
  Serious: Yes (Death)
  Sender: FDA-Public Use
  Company Number: 2007BI000264

PATIENT
  Sex: Male

DRUGS (6)
  1. AVONEX [Suspect]
     Indication: MULTIPLE SCLEROSIS
     Dosage: IM
     Route: 030
     Dates: start: 20050525, end: 20051001
  2. LASIX [Concomitant]
  3. IMMUNE GLOBULIN INTRAVENOUS (HUMAN) [Concomitant]
  4. VERAPAMIL [Concomitant]
  5. ASPIRIN [Concomitant]
  6. FOSAMAX [Concomitant]

REACTIONS (2)
  - MYOPATHY [None]
  - NEUROPATHY [None]
